FAERS Safety Report 15144874 (Version 1)
Quarter: 2018Q3

REPORT INFORMATION
  Report Type: Report from Study
  Country: US (occurrence: US)
  Receive Date: 20180713
  Receipt Date: 20180713
  Transmission Date: 20181010
  Serious: Yes (Hospitalization, Other)
  Sender: FDA-Public Use
  Company Number: US-EXELIXIS-CABO-17010647

PATIENT
  Sex: Male
  Weight: 68.98 kg

DRUGS (15)
  1. TYLENOL WITH CODEINE [Concomitant]
     Active Substance: ACETAMINOPHEN\CODEINE PHOSPHATE
  2. ONDANSETRON [Concomitant]
     Active Substance: ONDANSETRON
  3. COMETRIQ [Suspect]
     Active Substance: CABOZANTINIB S-MALATE
     Indication: THYROID CANCER METASTATIC
     Dosage: 140 MG, QD
     Dates: start: 201507
  4. MORPHINE [Concomitant]
     Active Substance: MORPHINE
  5. COMETRIQ [Suspect]
     Active Substance: CABOZANTINIB S-MALATE
     Dosage: 60 MG, QD
     Route: 048
     Dates: start: 201509
  6. ODEFSEY [Concomitant]
     Active Substance: EMTRICITABINE\RILPIVIRINE HYDROCHLORIDE\TENOFOVIR ALAFENAMIDE FUMARATE
  7. MELOXICAM. [Concomitant]
     Active Substance: MELOXICAM
  8. COMETRIQ [Suspect]
     Active Substance: CABOZANTINIB S-MALATE
     Dosage: 100 MG, QD
     Route: 048
     Dates: start: 20180508, end: 201806
  9. LEVOTHYROXINE SODIUM. [Concomitant]
     Active Substance: LEVOTHYROXINE SODIUM
  10. DULOXETINE DR [Concomitant]
     Active Substance: DULOXETINE
  11. COMETRIQ [Suspect]
     Active Substance: CABOZANTINIB S-MALATE
     Dosage: 100 MG, QD
     Route: 048
     Dates: start: 20150822, end: 20150918
  12. LOMOTIL [Concomitant]
     Active Substance: ATROPINE SULFATE\DIPHENOXYLATE HYDROCHLORIDE
  13. MULTIVITAMINS, COMBINATIONS [Concomitant]
     Active Substance: VITAMINS
  14. CYCLOBENZAPRINE. [Concomitant]
     Active Substance: CYCLOBENZAPRINE
  15. DIAZEPAM. [Concomitant]
     Active Substance: DIAZEPAM

REACTIONS (7)
  - Polycythaemia [Unknown]
  - Insomnia [Unknown]
  - Malignant neoplasm progression [Unknown]
  - Uraemic encephalopathy [Unknown]
  - Renal failure [Recovering/Resolving]
  - Depression [Unknown]
  - Anxiety [Unknown]
